FAERS Safety Report 18001825 (Version 1)
Quarter: 2020Q3

REPORT INFORMATION
  Report Type: Spontaneous
  Country: US (occurrence: US)
  Receive Date: 20200709
  Receipt Date: 20200709
  Transmission Date: 20201103
  Serious: No
  Sender: FDA-Public Use
  Company Number: US-ROCHE-2555803

PATIENT
  Age: 50 Year
  Sex: Male
  Weight: 105.33 kg

DRUGS (2)
  1. RITUXAN [Suspect]
     Active Substance: RITUXIMAB
     Indication: NON-HODGKIN^S LYMPHOMA
     Dosage: ONGOING: NO
     Route: 042
  2. RITUXAN HYCELA [Suspect]
     Active Substance: HYALURONIDASE (HUMAN RECOMBINANT)\RITUXIMAB
     Indication: NON-HODGKIN^S LYMPHOMA
     Dosage: 1,400 MG SUBCUTANEOUSLY ONCE WEEKLY ;ONGOING: UNKNOWN
     Route: 058
     Dates: start: 20200213

REACTIONS (2)
  - Platelet count decreased [Recovering/Resolving]
  - Haematoma [Recovering/Resolving]
